FAERS Safety Report 24772456 (Version 1)
Quarter: 2024Q4

REPORT INFORMATION
  Report Type: Other
  Country: IL (occurrence: IL)
  Receive Date: 20241224
  Receipt Date: 20241224
  Transmission Date: 20250115
  Serious: Yes (Hospitalization, Other)
  Sender: WES PHARMA INC
  Company Number: IL-WES Pharma Inc-2167696

PATIENT
  Age: 26 Year
  Sex: Male

DRUGS (1)
  1. ACETAMINOPHEN\OXYCODONE HYDROCHLORIDE [Suspect]
     Active Substance: ACETAMINOPHEN\OXYCODONE HYDROCHLORIDE
     Indication: Product used for unknown indication

REACTIONS (4)
  - Leukocytosis [Unknown]
  - Drug abuse [Unknown]
  - Inflammation [Unknown]
  - Thrombocytosis [Unknown]
